FAERS Safety Report 4903090-2 (Version None)
Quarter: 2006Q1

REPORT INFORMATION
  Report Type: 
  Country: None (occurrence: None)
  Receive Date: 20060207
  Receipt Date: 20050517
  Transmission Date: 20060701
  Serious: Yes (Hospitalization)
  Sender: FDA-Public Use
  Company Number: US-MERCK-0505USA02129

PATIENT
  Age: 65 Year
  Sex: Male
  Weight: 130 kg

DRUGS (10)
  1. VIOXX [Suspect]
     Indication: ARTHRITIS
     Route: 048
     Dates: start: 20030605, end: 20040304
  2. VIOXX [Suspect]
     Route: 048
     Dates: start: 20030605, end: 20040304
  3. VIOXX [Suspect]
     Indication: NECK PAIN
     Route: 048
     Dates: start: 20030605, end: 20040304
  4. VIOXX [Suspect]
     Route: 048
     Dates: start: 20030605, end: 20040304
  5. CALAN [Concomitant]
     Route: 048
  6. AMARYL [Concomitant]
     Route: 048
  7. AVANDIA [Concomitant]
     Route: 048
  8. ZOCOR [Concomitant]
     Route: 048
  9. DYAZIDE [Concomitant]
     Route: 048
  10. ASPIRIN [Concomitant]
     Route: 048

REACTIONS (5)
  - ASTHENIA [None]
  - CEREBROVASCULAR ACCIDENT [None]
  - LACUNAR INFARCTION [None]
  - LOBAR PNEUMONIA [None]
  - PNEUMONIA [None]
